FAERS Safety Report 4270876-X (Version None)
Quarter: 2004Q1

REPORT INFORMATION
  Report Type: 
  Country: None (occurrence: None)
  Receive Date: 20040114
  Receipt Date: 20020412
  Transmission Date: 20041129
  Serious: Yes (Hospitalization, Other)
  Sender: FDA-Public Use
  Company Number: AU-BRISTOL-MYERS SQUIBB COMPANY-11813706

PATIENT
  Age: 73 Year
  Sex: Male

DRUGS (12)
  1. PRAVASTATIN SODIUM [Suspect]
     Dosage: DRUG WAS PERMANENTLY DISCONTINUED.
     Route: 048
     Dates: start: 20010215, end: 20020222
  2. GATIFLOXACIN [Suspect]
     Dosage: DISCONTINUED DUE TO NON-SERIOUS EVENT
     Route: 048
     Dates: start: 20010226, end: 20010918
  3. PERINDOPRIL [Suspect]
     Route: 048
     Dates: start: 20010214
  4. SERTRALINE HCL [Suspect]
     Dosage: DOSE REDUCED TO 50 MG DAILY DUE TO EVENTS
     Route: 048
  5. VIOXX [Suspect]
     Route: 048
     Dates: start: 20000101
  6. CLOPIDOGREL BISULFATE [Concomitant]
     Route: 048
     Dates: start: 20010516
  7. GLICLAZIDE [Concomitant]
     Route: 048
  8. QUININE [Concomitant]
     Route: 048
  9. NICORANDIL [Concomitant]
     Route: 048
     Dates: start: 20010214
  10. VITAMIN A [Concomitant]
     Dosage: DOSE WAS ONE TABLET PER DAY
     Route: 048
  11. LASIX [Concomitant]
     Route: 048
  12. PANTOPRAZOLE [Concomitant]
     Dates: start: 20010514

REACTIONS (6)
  - ATRIAL FIBRILLATION [None]
  - ELECTROCARDIOGRAM T WAVE PEAKED [None]
  - HYPERKALAEMIA [None]
  - MYOPATHY [None]
  - RENAL FAILURE ACUTE [None]
  - VENTRICULAR HYPERTROPHY [None]
